FAERS Safety Report 16438102 (Version 1)
Quarter: 2019Q2

REPORT INFORMATION
  Report Type: Spontaneous
  Country: SE (occurrence: SE)
  Receive Date: 20190617
  Receipt Date: 20190617
  Transmission Date: 20190711
  Serious: Yes (Hospitalization)
  Sender: FDA-Public Use
  Company Number: SE-UNICHEM PHARMACEUTICALS (USA) INC-UCM201906-000216

PATIENT
  Age: 36 Year
  Sex: Male

DRUGS (1)
  1. QUETIAPINE. [Suspect]
     Active Substance: QUETIAPINE
     Indication: PRODUCT USED FOR UNKNOWN INDICATION
     Dosage: 80 G (200 TABLETS *400 MG)

REACTIONS (2)
  - Bezoar [Recovered/Resolved]
  - Overdose [Unknown]
